FAERS Safety Report 8103803 (Version 4)
Quarter: 2013Q1

REPORT INFORMATION
  Report Type: Spontaneous
  Country: US (occurrence: US)
  Receive Date: 20110824
  Receipt Date: 20130201
  Transmission Date: 20140127
  Serious: Yes (Other)
  Sender: FDA-Public Use
  Company Number: US-ALEXION PHARMACEUTICALS INC.-A201101248

PATIENT
  Sex: Male

DRUGS (9)
  1. SOLIRIS 300MG [Suspect]
     Indication: PAROXYSMAL NOCTURNAL HAEMOGLOBINURIA
     Dosage: 600 MG, QW
     Route: 042
  2. SOLIRIS 300MG [Suspect]
     Dosage: 900 MG, Q2W
     Route: 042
  3. LIPITOR [Concomitant]
     Dosage: 80 MG, QD
     Route: 048
  4. LORAZEPAM [Concomitant]
     Dosage: 1 MG, QD
     Route: 048
  5. LEXAPRO [Concomitant]
     Dosage: 15 MG, QD
     Route: 048
  6. FOLIC ACID [Concomitant]
     Dosage: 1 MG, QD
     Route: 048
  7. DILTIAZEM HCL [Concomitant]
     Dosage: 120 MG, BID
  8. AVODART [Concomitant]
     Dosage: 0.5 MG, QD
     Route: 048
  9. BLOOD TRANSFUSION, AUXILIARY PRODUCTS [Concomitant]
     Dosage: UNK

REACTIONS (5)
  - Pneumonia [Not Recovered/Not Resolved]
  - Haemoglobin decreased [Recovering/Resolving]
  - Blood iron increased [Unknown]
  - Nodule [Not Recovered/Not Resolved]
  - Pyrexia [Unknown]
